FAERS Safety Report 19726245 (Version 1)
Quarter: 2021Q3

REPORT INFORMATION
  Report Type: Spontaneous
  Country: LU (occurrence: LU)
  Receive Date: 20210819
  Receipt Date: 20210819
  Transmission Date: 20211014
  Serious: Yes (Hospitalization, Other)
  Sender: FDA-Public Use
  Company Number: LU-SA-2021SA267281

PATIENT
  Age: 48 Year
  Sex: Female
  Weight: 95 kg

DRUGS (12)
  1. EUTHYROX [Concomitant]
     Active Substance: LEVOTHYROXINE SODIUM
     Indication: HYPOTHYROIDISM
     Dosage: 150 UG
     Route: 048
  2. PANTOMED [DEXPANTHENOL] [Concomitant]
     Indication: DYSPEPSIA
     Dosage: UNK
     Route: 065
  3. TOUJEO [Suspect]
     Active Substance: INSULIN GLARGINE
     Indication: TYPE 1 DIABETES MELLITUS
     Dosage: 28 IU, QD
     Route: 065
     Dates: start: 202003
  4. RIOPAN [MAGALDRATE] [Concomitant]
     Active Substance: MAGALDRATE
     Indication: DYSPEPSIA
     Dosage: UNK
     Route: 065
  5. TRIPTOCALM [Concomitant]
     Dosage: 250 MG
     Route: 065
  6. CIRCADIN [Concomitant]
     Active Substance: MELATONIN
     Dosage: 1 MG
     Route: 065
  7. INSULIN LISPRO [Suspect]
     Active Substance: INSULIN LISPRO
     Indication: TYPE 1 DIABETES MELLITUS
     Dosage: 28 IU
     Route: 065
  8. ULTRA MAGNESIUM [Concomitant]
     Dosage: 1 DF
     Route: 065
  9. IRON PICOLINATE [Concomitant]
     Dosage: 100 MG
     Route: 065
  10. FORXIGA [Suspect]
     Active Substance: DAPAGLIFLOZIN
     Indication: TYPE 1 DIABETES MELLITUS
     Dosage: 10 MG, QD
     Route: 048
     Dates: start: 202003, end: 20210720
  11. ZINC?L?CARNOSINE [Concomitant]
     Dosage: 1 DF
     Route: 065
  12. DOPAC [DOPAMINE HYDROCHLORIDE] [Concomitant]
     Dosage: 1 DF
     Route: 065

REACTIONS (3)
  - Abdominal pain upper [Recovering/Resolving]
  - Euglycaemic diabetic ketoacidosis [Recovering/Resolving]
  - Vomiting [Recovering/Resolving]

NARRATIVE: CASE EVENT DATE: 202107
